FAERS Safety Report 8247425-4 (Version None)
Quarter: 2012Q1

REPORT INFORMATION
  Report Type: 
  Country: None (occurrence: None)
  Receive Date: 20120316
  Receipt Date: 20081210
  Transmission Date: 20120608
  Serious: Yes (Other)
  Sender: FDA-Public Use
  Company Number: PHEH2008US07678

PATIENT
  Age: 64 Year
  Sex: Female

DRUGS (9)
  1. TEKTURNA [Suspect]
     Indication: HYPERTENSION
     Dosage: 150 MG, QD, ORAL 150 MG, BID 300 MG A DAY
     Route: 048
     Dates: start: 20080820
  2. TEKTURNA [Suspect]
     Indication: HYPERTENSION
     Dosage: 150 MG, QD, ORAL 150 MG, BID 300 MG A DAY
     Route: 048
     Dates: start: 20070101
  3. FISH OIL (FISH OIL) [Concomitant]
  4. CALCIUM WITH VITAMIN D (CALCIUM PHOSPHATE, CALCIUM SODIUM LACTATE, ERG [Concomitant]
  5. CHONDROITIN SULFATE (CHONDROITIN SULFATE) [Concomitant]
  6. LEVOTHYROXINE SODIUM [Concomitant]
  7. VITAMIN D [Concomitant]
  8. HYDROCHLOROTHIAZIDE [Concomitant]
  9. LIPITOR [Concomitant]

REACTIONS (2)
  - BLOOD PRESSURE DIASTOLIC INCREASED [None]
  - HEADACHE [None]
